FAERS Safety Report 25770145 (Version 1)
Quarter: 2025Q3

REPORT INFORMATION
  Report Type: Report from Study
  Country: US (occurrence: US)
  Receive Date: 20250907
  Receipt Date: 20250907
  Transmission Date: 20251021
  Serious: Yes (Other)
  Sender: ABBVIE
  Company Number: US-ABBVIE-6445608

PATIENT
  Sex: Female

DRUGS (1)
  1. SKYRIZI [Suspect]
     Active Substance: RISANKIZUMAB-RZAA
     Indication: Psoriasis
     Route: 058
     Dates: start: 20230405

REACTIONS (6)
  - Unresponsive to stimuli [Unknown]
  - Tremor [Unknown]
  - Syncope [Recovering/Resolving]
  - Malaise [Unknown]
  - Aphasia [Unknown]
  - Movement disorder [Unknown]
